FAERS Safety Report 4334758-7 (Version None)
Quarter: 2004Q2

REPORT INFORMATION
  Report Type: 
  Country: None (occurrence: None)
  Receive Date: 20040408
  Receipt Date: 20030627
  Transmission Date: 20050107
  Serious: Yes (Other)
  Sender: FDA-Public Use
  Company Number: 200316651GDDC

PATIENT
  Sex: 0

DRUGS (2)
  1. ARAVA [Suspect]
     Indication: FIBROMYALGIA
     Route: 048
     Dates: start: 20030101, end: 20030413
  2. CIPRAMIL [Concomitant]
     Indication: DEPRESSION
     Route: 048
     Dates: start: 20030201, end: 20030601

REACTIONS (6)
  - ANOREXIA [None]
  - DIARRHOEA [None]
  - GAMMA-GLUTAMYLTRANSFERASE INCREASED [None]
  - MEDICATION ERROR [None]
  - NAUSEA [None]
  - WEIGHT DECREASED [None]
